FAERS Safety Report 22121768 (Version 1)
Quarter: 2023Q1

REPORT INFORMATION
  Report Type: Spontaneous
  Country: US (occurrence: US)
  Receive Date: 20230321
  Receipt Date: 20230321
  Transmission Date: 20230417
  Serious: No
  Sender: FDA-Public Use
  Company Number: US-PIERREL PHARMA S.R.L.-2022PIR00033

PATIENT
  Age: 11 Year
  Sex: Female

DRUGS (1)
  1. ORABLOC [Suspect]
     Active Substance: ARTICAINE HYDROCHLORIDE\EPINEPHRINE BITARTRATE
     Indication: Anaesthesia
     Dosage: 1.5 DOSAGE FORM (CARPULES), ONCE
     Dates: start: 20221017, end: 20221017

REACTIONS (1)
  - Therapeutic product effect incomplete [Recovered/Resolved]

NARRATIVE: CASE EVENT DATE: 20221017
